FAERS Safety Report 9719185 (Version 1)
Quarter: 2013Q4

REPORT INFORMATION
  Report Type: Spontaneous
  Country: NL (occurrence: NL)
  Receive Date: 20131127
  Receipt Date: 20131127
  Transmission Date: 20140711
  Serious: Yes (Death, Other)
  Sender: FDA-Public Use
  Company Number: PHHY2013NL134052

PATIENT
  Sex: Female

DRUGS (2)
  1. DROSPIRENONE+ETHINYLESTRADIOL [Suspect]
     Indication: CONTRACEPTION
     Route: 048
  2. NITROFURANTOIN [Concomitant]

REACTIONS (3)
  - Pulmonary embolism [Fatal]
  - Circulatory collapse [Unknown]
  - Gastrointestinal haemorrhage [Unknown]
